FAERS Safety Report 5645777-2 (Version None)
Quarter: 2008Q1

REPORT INFORMATION
  Report Type: 
  Country: None (occurrence: None)
  Receive Date: 20080229
  Receipt Date: 20080227
  Transmission Date: 20080703
  Serious: Yes (Hospitalization)
  Sender: FDA-Public Use
  Company Number: US-ABBOTT-08P-163-0439991-00

PATIENT
  Sex: Male
  Weight: 94.432 kg

DRUGS (4)
  1. HUMIRA [Suspect]
     Indication: RHEUMATOID ARTHRITIS
     Route: 058
     Dates: start: 20060201, end: 20070901
  2. HUMIRA [Suspect]
     Indication: RHEUMATOID ARTHRITIS
     Route: 058
     Dates: start: 20070901, end: 20080101
  3. HUMIRA [Suspect]
     Route: 058
     Dates: start: 20080101
  4. VICODIN [Concomitant]
     Indication: PAIN
     Route: 048

REACTIONS (6)
  - CARDIAC FAILURE [None]
  - DRUG DOSE OMISSION [None]
  - HOSPITALISATION [None]
  - MOBILITY DECREASED [None]
  - PAIN [None]
  - STRESS [None]
